FAERS Safety Report 25392618 (Version 1)
Quarter: 2025Q2

REPORT INFORMATION
  Report Type: Report from Study
  Country: US (occurrence: US)
  Receive Date: 20250603
  Receipt Date: 20250603
  Transmission Date: 20250717
  Serious: Yes (Other)
  Sender: ABBVIE
  Company Number: US-ABBVIE-6305676

PATIENT
  Age: 80 Year
  Sex: Female

DRUGS (1)
  1. HUMIRA [Suspect]
     Active Substance: ADALIMUMAB
     Indication: Psoriatic arthropathy
     Route: 058
     Dates: start: 20250129

REACTIONS (3)
  - Large intestinal haemorrhage [Not Recovered/Not Resolved]
  - Skin plaque [Unknown]
  - Scar [Unknown]

NARRATIVE: CASE EVENT DATE: 20250101
